FAERS Safety Report 4954060-X (Version None)
Quarter: 2006Q1

REPORT INFORMATION
  Report Type: 
  Country: None (occurrence: None)
  Receive Date: 20060322
  Receipt Date: 20060316
  Transmission Date: 20060701
  Serious: Yes (Hospitalization)
  Sender: FDA-Public Use
  Company Number: 2004111259

PATIENT
  Age: 64 Year
  Sex: Female
  Weight: 54 kg

DRUGS (3)
  1. GLIPIZIDE [Suspect]
     Indication: ILL-DEFINED DISORDER
     Dosage: ORAL
     Route: 048
  2. METFORMIN EMBONATE (METFORMIN EMBONATE) [Concomitant]
  3. CIPROFIBRATE (CIPROFIBRATE) [Concomitant]

REACTIONS (3)
  - APLASIA PURE RED CELL [None]
  - BONE MARROW FAILURE [None]
  - MICROCYTIC ANAEMIA [None]
